FAERS Safety Report 8757973 (Version 1)
Quarter: 2012Q4

REPORT INFORMATION
  Report Type: 
  Country: US (occurrence: US)
  Receive Date: 20120828
  Receipt Date: 20120828
  Transmission Date: 20130627
  Serious: No
  Sender: FDA-Public Use
  Company Number: US-PFIZER INC-2012207388

PATIENT
  Age: 74 Year
  Sex: Female
  Weight: 83.9 kg

DRUGS (2)
  1. PREMARIN [Suspect]
     Indication: MENOPAUSAL SYMPTOMS
     Dosage: UNK, once
     Route: 067
     Dates: start: 20120816, end: 20120817
  2. XANAX [Concomitant]
     Indication: EAR DISORDER
     Dosage: UNK

REACTIONS (4)
  - Oral discomfort [Unknown]
  - Throat irritation [Unknown]
  - Burning sensation [Unknown]
  - Oropharyngeal pain [Unknown]
